FAERS Safety Report 13496018 (Version 1)
Quarter: 2017Q2

REPORT INFORMATION
  Report Type: Spontaneous
  Country: US (occurrence: US)
  Receive Date: 20170428
  Receipt Date: 20170428
  Transmission Date: 20170830
  Serious: No
  Sender: FDA-Public Use
  Company Number: US-GLAXOSMITHKLINE-US2017058801

PATIENT
  Sex: Female

DRUGS (1)
  1. ABREVA [Suspect]
     Active Substance: DOCOSANOL
     Indication: ORAL HERPES
     Dosage: UNK, USED IT MORE THAN FIVES TIMES A DAY

REACTIONS (6)
  - Application site reaction [Unknown]
  - Application site scab [Unknown]
  - Scar [Unknown]
  - Wrong technique in product usage process [Unknown]
  - Application site dryness [Unknown]
  - Inappropriate schedule of drug administration [Unknown]
